FAERS Safety Report 7786008-7 (Version None)
Quarter: 2011Q3

REPORT INFORMATION
  Report Type: 
  Country: None (occurrence: None)
  Receive Date: 20110929
  Receipt Date: 20110920
  Transmission Date: 20111222
  Serious: Yes (Other)
  Sender: FDA-Public Use
  Company Number: CY-MPIJNJ-2011-03292

PATIENT

DRUGS (8)
  1. ZYLORIC                            /00003301/ [Concomitant]
     Dosage: 100 MG, UNK
  2. SEPTRA [Concomitant]
     Dosage: 400 MG, UNK
  3. VELCADE [Suspect]
     Indication: MULTIPLE MYELOMA
     Dosage: UNK
     Dates: start: 20070101
  4. DIOVAN [Concomitant]
     Indication: HYPERTENSION
     Dosage: 80 MG, UNK
  5. VELCADE [Suspect]
     Dosage: 1.0 MG/M2, UNK
     Route: 058
     Dates: start: 20110726
  6. ZOVIRAX                            /00587301/ [Concomitant]
     Dosage: 200 MG, UNK
  7. VELCADE [Suspect]
     Dosage: 1.3 MG/M2, CYCLIC
     Dates: start: 20110701
  8. OMEPRAZOLE [Concomitant]
     Dosage: 20 MG, UNK

REACTIONS (3)
  - LEUKOENCEPHALOPATHY [None]
  - HYPOTENSION [None]
  - OFF LABEL USE [None]
